FAERS Safety Report 6994590-2 (Version None)
Quarter: 2010Q3

REPORT INFORMATION
  Report Type: 
  Country: None (occurrence: None)
  Receive Date: 20100916
  Receipt Date: 20100916
  Transmission Date: 20110219
  Serious: No
  Sender: FDA-Public Use
  Company Number: None

PATIENT

DRUGS (1)
  1. MIDAZOLAM HCL [Suspect]
     Indication: SEDATION
     Dosage: VARIABLE IV
     Route: 042
     Dates: start: 20090914, end: 20100914

REACTIONS (1)
  - DRUG EFFECT DECREASED [None]
